FAERS Safety Report 15037135 (Version 1)
Quarter: 2018Q2

REPORT INFORMATION
  Report Type: Spontaneous
  Country: FR (occurrence: FR)
  Receive Date: 20180620
  Receipt Date: 20180620
  Transmission Date: 20180711
  Serious: Yes (Other)
  Sender: FDA-Public Use
  Company Number: FR-PFIZER INC-2018240505

PATIENT
  Age: 49 Year
  Sex: Female
  Weight: 55 kg

DRUGS (7)
  1. MACROGOL 600 DISTEARATE [Concomitant]
  2. LEVOTHYROX [Concomitant]
     Active Substance: LEVOTHYROXINE
  3. XGEVA [Concomitant]
     Active Substance: DENOSUMAB
  4. ACTISKENAN [Concomitant]
     Active Substance: MORPHINE SULFATE
  5. SKENAN [Concomitant]
     Active Substance: MORPHINE SULFATE
  6. LEXOMIL [Concomitant]
     Active Substance: BROMAZEPAM
  7. PACLITAXEL HOSPIRA [Suspect]
     Active Substance: PACLITAXEL
     Indication: BREAST CANCER
     Dosage: AN INJECTION ON DAY 1,  DAY 8, DAY 15 AND DAY 28
     Route: 041
     Dates: start: 20171113

REACTIONS (1)
  - Pancytopenia [Not Recovered/Not Resolved]

NARRATIVE: CASE EVENT DATE: 201801
